FAERS Safety Report 6782712-8 (Version None)
Quarter: 2010Q2

REPORT INFORMATION
  Report Type: 
  Country: None (occurrence: None)
  Receive Date: 20100621
  Receipt Date: 20100610
  Transmission Date: 20101027
  Serious: Yes (Hospitalization, Other)
  Sender: FDA-Public Use
  Company Number: PHBS2007JP13639

PATIENT
  Sex: Male
  Weight: 61 kg

DRUGS (14)
  1. CERTICAN [Suspect]
     Indication: HEART TRANSPLANT
     Dosage: 1 MG/D
     Route: 048
     Dates: start: 20070319, end: 20070416
  2. CERTICAN [Suspect]
     Dosage: 1.5 MG/D
     Route: 048
     Dates: start: 20070417, end: 20070418
  3. CERTICAN [Suspect]
     Dosage: 1 MG/D
     Route: 048
     Dates: start: 20070419, end: 20070527
  4. CERTICAN [Suspect]
     Dosage: 1.5 MG/D
     Route: 048
     Dates: start: 20070528, end: 20070614
  5. CERTICAN [Suspect]
     Dosage: 1.25 MG/D
     Route: 048
     Dates: start: 20070615
  6. NEORAL [Suspect]
     Indication: HEART TRANSPLANT
     Dosage: 175 MG/DAY
     Route: 048
     Dates: start: 20021114, end: 20060316
  7. NEORAL [Suspect]
     Dosage: 175 MG/DAY
     Route: 048
     Dates: start: 20060316, end: 20060510
  8. NEORAL [Suspect]
     Dosage: 150 MG/DAY
     Route: 048
     Dates: start: 20060511
  9. PREDONINE [Suspect]
     Indication: HEART TRANSPLANT
     Dosage: 5 MG, UNK
     Route: 048
     Dates: start: 20021114
  10. CELLCEPT [Suspect]
     Indication: HEART TRANSPLANT
     Dosage: 2 G/DAY
     Route: 048
     Dates: start: 20021115, end: 20060519
  11. CELLCEPT [Suspect]
     Dosage: 1.5 G/DAY
     Route: 048
     Dates: start: 20060520
  12. PROGRAF [Suspect]
     Indication: HEART TRANSPLANT
     Route: 048
  13. NORVASC [Concomitant]
     Indication: HYPERTENSION
     Dosage: 5 MG/DAY
     Route: 048
     Dates: start: 20021119
  14. EPADEL [Concomitant]
     Indication: HYPERLIPIDAEMIA
     Dosage: 1800 MG/DAY
     Route: 048
     Dates: start: 20060123

REACTIONS (10)
  - BLOOD TRIGLYCERIDES INCREASED [None]
  - CHOLECYSTECTOMY [None]
  - CHOLECYSTITIS [None]
  - CHOLELITHIASIS [None]
  - CORONARY ARTERY DISEASE [None]
  - DRUG LEVEL INCREASED [None]
  - HYPERCHOLESTEROLAEMIA [None]
  - LAPAROSCOPIC SURGERY [None]
  - PNEUMONIA PNEUMOCOCCAL [None]
  - STOMATITIS [None]
